FAERS Safety Report 17821494 (Version 1)
Quarter: 2020Q2

REPORT INFORMATION
  Report Type: Spontaneous
  Country: CA (occurrence: CA)
  Receive Date: 20200525
  Receipt Date: 20200525
  Transmission Date: 20200714
  Serious: Yes (Death, Other)
  Sender: FDA-Public Use
  Company Number: CA-PFIZER INC-2020197606

PATIENT
  Age: 72 Year
  Sex: Male

DRUGS (4)
  1. METOCLOPRAMIDE. [Concomitant]
     Active Substance: METOCLOPRAMIDE
     Indication: NAUSEA
     Dosage: 10 MG,Q 4 TO 6 HOURS AS REQUIRED,FOR 30 DAYS
     Route: 048
     Dates: start: 20200512
  2. METOCLOPRAMIDE. [Concomitant]
     Active Substance: METOCLOPRAMIDE
     Indication: VOMITING
  3. SUTENT [Suspect]
     Active Substance: SUNITINIB MALATE
     Indication: NEOPLASM MALIGNANT
     Dosage: 25 MG, TAKE ONCE DAILY FOR 14 DAYS OF A 21 DAY CYCLE (2 WEEKS ON, 1 WEEK OFF).
     Route: 048
     Dates: start: 20200512
  4. LOPERAMIDE [Concomitant]
     Active Substance: LOPERAMIDE
     Indication: DIARRHOEA
     Dosage: 2 MG,QBM,PRN,TAKE 4MG(2 TAB)AFTER 1ST LOOSE STOOL THEN 2 MG Q 2 HRS UNTIL DIARRHEA FREE FOR 12 HRS
     Route: 048
     Dates: start: 20200512

REACTIONS (2)
  - Pneumonia [Unknown]
  - Death [Fatal]

NARRATIVE: CASE EVENT DATE: 20200521
